FAERS Safety Report 8951378 (Version 1)
Quarter: 2012Q4

REPORT INFORMATION
  Report Type: 
  Country: US (occurrence: US)
  Receive Date: 20121207
  Receipt Date: 20121207
  Transmission Date: 20130627
  Serious: No
  Sender: FDA-Public Use
  Company Number: US-BAYER-2012-121332

PATIENT
  Age: 45 Year
  Sex: Female
  Weight: 63.49 kg

DRUGS (5)
  1. BETASERON [Suspect]
     Indication: MS
     Dosage: 0.3 mg, UNK
     Route: 058
     Dates: start: 20091201
  2. BETASERON [Suspect]
     Indication: MS
     Dosage: 0.25 ml, QOD,1-2 week
     Route: 058
  3. BETASERON [Suspect]
     Indication: MS
     Dosage: 0.5 ml, QOD,3-4 week
     Route: 058
  4. BETASERON [Suspect]
     Indication: MS
     Dosage: 0.75 ml, QOD,5-6 week
     Route: 058
  5. BETASERON [Suspect]
     Indication: MS
     Dosage: 1 ml, QOD,7 week
     Route: 058

REACTIONS (2)
  - Injection site pain [Unknown]
  - Injection site erythema [Unknown]
